FAERS Safety Report 22605888 (Version 1)
Quarter: 2023Q2

REPORT INFORMATION
  Report Type: Spontaneous
  Country: US (occurrence: US)
  Receive Date: 20230615
  Receipt Date: 20230615
  Transmission Date: 20230722
  Serious: Yes (Other)
  Sender: FDA-Public Use
  Company Number: US-BRISTOL-MYERS SQUIBB COMPANY-2023-084067

PATIENT
  Age: 80 Year
  Sex: Female

DRUGS (1)
  1. SPRYCEL [Suspect]
     Active Substance: DASATINIB
     Indication: Chronic myeloid leukaemia
     Dosage: DAILY
     Route: 048
     Dates: start: 202306

REACTIONS (6)
  - Fatigue [Unknown]
  - Renal impairment [Unknown]
  - Diarrhoea [Unknown]
  - Atrial fibrillation [Unknown]
  - Pneumonia [Unknown]
  - Faeces discoloured [Unknown]
